FAERS Safety Report 9404684 (Version 2)
Quarter: 2014Q3

REPORT INFORMATION
  Report Type: Report from Study
  Country: MX (occurrence: MX)
  Receive Date: 20130717
  Receipt Date: 20140723
  Transmission Date: 20150326
  Serious: Yes (Other)
  Sender: FDA-Public Use
  Company Number: PHHY2013MX012923

PATIENT
  Age: 77 Year
  Sex: Female

DRUGS (3)
  1. KARET [Concomitant]
     Indication: HYPOTHYROIDISM
     Dosage: 1 UKN, DAILY
     Dates: start: 201302
  2. CO-DIOVAN [Suspect]
     Active Substance: HYDROCHLOROTHIAZIDE\VALSARTAN
     Indication: HYPERTENSION
     Dosage: 1 DF (80 MG VALS/ 12.5 MG HCTZ), DAILY
     Route: 048
     Dates: start: 201212, end: 201304
  3. CO-DIOVAN [Suspect]
     Active Substance: HYDROCHLOROTHIAZIDE\VALSARTAN
     Dosage: 1 DF (160/ 12.5 MG) DAILY
     Route: 048
     Dates: start: 201304

REACTIONS (5)
  - Blood pressure fluctuation [Recovered/Resolved]
  - Acne [Recovered/Resolved]
  - Drug hypersensitivity [Not Recovered/Not Resolved]
  - Food intolerance [Recovered/Resolved]
  - Peripheral swelling [Recovered/Resolved]

NARRATIVE: CASE EVENT DATE: 201212
